FAERS Safety Report 4461676-6 (Version None)
Quarter: 2004Q3

REPORT INFORMATION
  Report Type: 
  Country: None (occurrence: None)
  Receive Date: 20040929
  Receipt Date: 20010427
  Transmission Date: 20050211
  Serious: Yes (Hospitalization)
  Sender: FDA-Public Use
  Company Number: 200113318FR

PATIENT
  Age: 45 Year
  Sex: Male

DRUGS (5)
  1. TELFAST [Suspect]
     Route: 048
     Dates: end: 20010215
  2. TOPLEXIL ^THERAPLIX^ [Suspect]
     Dates: end: 20010215
  3. SOLUPRED [Suspect]
     Dates: start: 20010215, end: 20010215
  4. RHINOTROPHYL [Suspect]
     Dates: end: 20010215
  5. NUREFLEX [Suspect]
     Route: 048
     Dates: end: 20010215

REACTIONS (2)
  - FACE OEDEMA [None]
  - RASH MACULO-PAPULAR [None]
